FAERS Safety Report 24922314 (Version 1)
Quarter: 2025Q1

REPORT INFORMATION
  Report Type: Spontaneous
  Country: GB (occurrence: GB)
  Receive Date: 20250204
  Receipt Date: 20250204
  Transmission Date: 20250409
  Serious: Yes (Other)
  Sender: SANOFI AVENTIS
  Company Number: GB-MHRA-TPP25096856C16269920YC1738166215378

PATIENT
  Age: 53 Year
  Sex: Female
  Weight: 73 kg

DRUGS (7)
  1. CLOPIDOGREL BISULFATE [Suspect]
     Active Substance: CLOPIDOGREL BISULFATE
     Dosage: 1 DF, QD
     Dates: start: 20241220
  2. ASPIRIN [Concomitant]
     Active Substance: ASPIRIN
     Dates: start: 20241203, end: 20241231
  3. FERROUS SULFATE [Concomitant]
     Active Substance: FERROUS SULFATE
     Dosage: 1 DF, QD
     Dates: start: 20230420
  4. Sun vita d3 [Concomitant]
     Dosage: 1 DF, QD
     Dates: start: 20230420
  5. LOSARTAN [Concomitant]
     Active Substance: LOSARTAN
     Dosage: 1 DF, QD
     Dates: start: 20240930
  6. ATORVASTATIN [Concomitant]
     Active Substance: ATORVASTATIN
     Dosage: 1 DF, QD
     Dates: start: 20241220
  7. OMEPRAZOLE [Concomitant]
     Active Substance: OMEPRAZOLE
     Dosage: 1 DF, QD
     Dates: start: 20241220

REACTIONS (1)
  - Illness [Recovered/Resolved]
